FAERS Safety Report 4492607-0 (Version None)
Quarter: 2004Q4

REPORT INFORMATION
  Report Type: 
  Country: None (occurrence: None)
  Receive Date: 20041029
  Receipt Date: 20041021
  Transmission Date: 20050328
  Serious: Yes (Hospitalization)
  Sender: FDA-Public Use
  Company Number: 2004-10-1191

PATIENT
  Age: 61 Year
  Sex: Female

DRUGS (1)
  1. PEG INTRON (PEGINTERFERON ALFA-2B0 INJECTABLE POWDER [Suspect]
     Indication: HEPATITIS C
     Dosage: SUBCUTANEOUS
     Route: 058
     Dates: start: 20030101, end: 20041011

REACTIONS (5)
  - ECCHYMOSIS [None]
  - EPISTAXIS [None]
  - LEUKOPENIA [None]
  - PETECHIAE [None]
  - THROMBOCYTOPENIA [None]
